FAERS Safety Report 24663330 (Version 1)
Quarter: 2024Q4

REPORT INFORMATION
  Report Type: Spontaneous
  Country: US (occurrence: US)
  Receive Date: 20241126
  Receipt Date: 20241126
  Transmission Date: 20250115
  Serious: Yes (Other)
  Sender: DR REDDYS
  Company Number: US-DRL-USA-LIT/USA/24/0017416

PATIENT
  Age: 71 Year
  Sex: Female

DRUGS (5)
  1. LETROZOLE [Suspect]
     Active Substance: LETROZOLE
     Indication: Endometrial cancer stage III
     Dosage: 13 CYCLES
  2. CARBOPLATIN [Suspect]
     Active Substance: CARBOPLATIN
     Indication: Endometrial cancer stage III
     Dosage: 4 CYCLES
  3. ABRAXANE [Suspect]
     Active Substance: PACLITAXEL
     Indication: Endometrial cancer stage III
     Dosage: 4 CYCLES
  4. PEMBROLIZUMAB [Suspect]
     Active Substance: PEMBROLIZUMAB
     Indication: Endometrial cancer stage III
     Dosage: 47 CYCLES , MONOTHERAPY
  5. BEVACIZUMAB [Suspect]
     Active Substance: BEVACIZUMAB
     Indication: Endometrial cancer stage III
     Dosage: 45 CYCLES

REACTIONS (2)
  - Malignant neoplasm progression [Unknown]
  - Drug ineffective for unapproved indication [Unknown]
